FAERS Safety Report 10154104 (Version 1)
Quarter: 2014Q2

REPORT INFORMATION
  Report Type: Spontaneous
  Country: US (occurrence: None)
  Receive Date: 20140505
  Receipt Date: 20140505
  Transmission Date: 20141212
  Serious: Yes (Hospitalization)
  Sender: FDA-Public Use
  Company Number: None

PATIENT
  Age: 40 Year
  Sex: Female

DRUGS (7)
  1. FIORICET [Suspect]
     Indication: SUICIDE ATTEMPT
     Route: 048
     Dates: start: 20130402
  2. CITALOPRAM [Concomitant]
  3. OXYCODONE [Concomitant]
  4. BUTALIBITAL [Concomitant]
  5. APAP [Concomitant]
  6. CAFFEINE [Concomitant]
  7. TRAMADOL [Concomitant]
     Indication: SUICIDE ATTEMPT

REACTIONS (2)
  - Overdose [None]
  - Suicide attempt [None]
